FAERS Safety Report 16465274 (Version 1)
Quarter: 2019Q2

REPORT INFORMATION
  Report Type: Spontaneous
  Country: US (occurrence: US)
  Receive Date: 20190621
  Receipt Date: 20190621
  Transmission Date: 20190711
  Serious: Yes (Other)
  Sender: FDA-Public Use
  Company Number: US-BAUSCH-BL-2019-017779

PATIENT
  Age: 63 Year
  Sex: Female
  Weight: 56.75 kg

DRUGS (1)
  1. LOTEMAX SM [Suspect]
     Active Substance: LOTEPREDNOL ETABONATE
     Indication: CORNEAL EROSION
     Route: 047
     Dates: start: 20190521, end: 201905

REACTIONS (4)
  - Skin discolouration [Recovered/Resolved]
  - Incorrect dose administered [Unknown]
  - Angiopathy [Recovered/Resolved]
  - Treatment noncompliance [Unknown]

NARRATIVE: CASE EVENT DATE: 201905
